FAERS Safety Report 14711211 (Version 1)
Quarter: 2018Q2

REPORT INFORMATION
  Report Type: Spontaneous
  Country: BR (occurrence: BR)
  Receive Date: 20180403
  Receipt Date: 20180403
  Transmission Date: 20180711
  Serious: Yes (Other)
  Sender: FDA-Public Use
  Company Number: PHHY2018BR057252

PATIENT
  Sex: Female
  Weight: 68 kg

DRUGS (2)
  1. OLCADIL [Suspect]
     Active Substance: CLOXAZOLAM
     Indication: NERVOUSNESS
     Dosage: 2 MG, BID (DOSE WAS 2 MG QD, IF SHE FELT VERY UNWELL, SHE TOOK BID)
     Route: 048
  2. DIOVAN [Suspect]
     Active Substance: VALSARTAN
     Indication: PRODUCT USED FOR UNKNOWN INDICATION
     Dosage: UNK
     Route: 065

REACTIONS (15)
  - Tachycardia [Unknown]
  - Localised infection [Unknown]
  - Pain in extremity [Not Recovered/Not Resolved]
  - Fall [Unknown]
  - Drug dependence [Unknown]
  - Crying [Unknown]
  - Nervous system disorder [Unknown]
  - Screaming [Unknown]
  - Malaise [Unknown]
  - Nervousness [Unknown]
  - Deafness unilateral [Unknown]
  - Spinal pain [Unknown]
  - Spinal cord injury [Unknown]
  - Gingival swelling [Unknown]
  - Drug hypersensitivity [Unknown]
